FAERS Safety Report 4583956-6 (Version None)
Quarter: 2005Q1

REPORT INFORMATION
  Report Type: 
  Country: None (occurrence: None)
  Receive Date: 20050211
  Receipt Date: 20050131
  Transmission Date: 20050727
  Serious: Yes (Other)
  Sender: FDA-Public Use
  Company Number: HQWYE038602FEB05

PATIENT
  Age: 66 Year
  Sex: Female

DRUGS (20)
  1. AMIODARONE (AMIODARONE, INJECTION) [Suspect]
     Indication: HEART RATE INCREASED
     Dosage: ON THE DAY OF SURGERY 200 MG BOLUS, INTRAVENOUS
     Route: 042
  2. CORDARONE [Concomitant]
  3. FUROSEMIDE [Concomitant]
  4. MIDAZOLAM HCL [Concomitant]
  5. INSULIN [Concomitant]
  6. HEPARIN [Concomitant]
  7. ACETYLCYSTEINE [Concomitant]
  8. SUCRALFATE [Concomitant]
  9. PROPOFOL [Concomitant]
  10. ACETAMINOPHEN [Concomitant]
  11. APROTININ [Concomitant]
  12. MORPHINE SULFATE [Concomitant]
  13. ESTRADIOL [Concomitant]
  14. PRAVASTATIN [Concomitant]
  15. NORETHISTERONE (NORETHISTERONE) [Concomitant]
  16. AMILORIDE HCL [Concomitant]
  17. HYDROCHLOROTHIAZID (HYDROCHLOROTHIAZIDE) [Concomitant]
  18. DIGOXIN [Concomitant]
  19. PHENPROCOUMON (PHENPROCOUMON) [Concomitant]
  20. METOPROLOL TARTRATE [Concomitant]

REACTIONS (3)
  - ATRIAL FIBRILLATION [None]
  - HEPATOCELLULAR DAMAGE [None]
  - HEPATOTOXICITY [None]
